FAERS Safety Report 5714706-5 (Version None)
Quarter: 2008Q2

REPORT INFORMATION
  Report Type: 
  Country: None (occurrence: None)
  Receive Date: 20080423
  Receipt Date: 20080414
  Transmission Date: 20081010
  Serious: Yes (Hospitalization)
  Sender: FDA-Public Use
  Company Number: US-MERCK-0705USA05329

PATIENT
  Age: 55 Year
  Sex: Female

DRUGS (2)
  1. FOSAMAX [Suspect]
     Indication: OSTEOPOROSIS
     Route: 048
  2. HORMONES (UNSPECIFIED) [Concomitant]
     Route: 065
     Dates: start: 19800101

REACTIONS (5)
  - BACK DISORDER [None]
  - BLOOD CHOLESTEROL INCREASED [None]
  - EAR PAIN [None]
  - LOOSE TOOTH [None]
  - PAIN IN JAW [None]
